FAERS Safety Report 4425025-1 (Version None)
Quarter: 2004Q3

REPORT INFORMATION
  Report Type: 
  Country: None (occurrence: None)
  Receive Date: 20040809
  Receipt Date: 20040728
  Transmission Date: 20050211
  Serious: Yes (Hospitalization)
  Sender: FDA-Public Use
  Company Number: 208106

PATIENT
  Age: 78 Year
  Sex: Female
  Weight: 45.4 kg

DRUGS (1)
  1. AVASTIN [Suspect]
     Indication: COLORECTAL CANCER METASTATIC
     Dosage: 5 MG KG Q2W INTRAVENOUS
     Route: 042
     Dates: start: 20040204

REACTIONS (1)
  - PULMONARY EMBOLISM [None]
